FAERS Safety Report 21500663 (Version 6)
Quarter: 2023Q1

REPORT INFORMATION
  Report Type: Spontaneous
  Country: CA (occurrence: CA)
  Receive Date: 20221025
  Receipt Date: 20230110
  Transmission Date: 20230417
  Serious: Yes (Hospitalization)
  Sender: FDA-Public Use
  Company Number: CA-CELLTRION INC.-2020CA019436

PATIENT

DRUGS (38)
  1. INFLECTRA [Suspect]
     Active Substance: INFLIXIMAB-DYYB
     Indication: Colitis ulcerative
     Dosage: 500 MG, EVERY 6 WEEKS
     Route: 042
     Dates: start: 20200210, end: 20200210
  2. INFLECTRA [Suspect]
     Active Substance: INFLIXIMAB-DYYB
     Dosage: 900 MG EVERY 6 WEEKS
     Route: 042
     Dates: start: 20200403
  3. INFLECTRA [Suspect]
     Active Substance: INFLIXIMAB-DYYB
     Dosage: 900 MG EVERY 6 WEEKS
     Route: 042
     Dates: start: 20200403
  4. INFLECTRA [Suspect]
     Active Substance: INFLIXIMAB-DYYB
     Dosage: 900 MG EVERY 6 WEEKS
     Route: 042
     Dates: start: 20200403, end: 20200915
  5. INFLECTRA [Suspect]
     Active Substance: INFLIXIMAB-DYYB
     Dosage: 900 MG EVERY 6 WEEKS
     Route: 042
     Dates: start: 20200512
  6. INFLECTRA [Suspect]
     Active Substance: INFLIXIMAB-DYYB
     Dosage: 900 MG EVERY 6 WEEKS
     Route: 042
     Dates: start: 20200626
  7. INFLECTRA [Suspect]
     Active Substance: INFLIXIMAB-DYYB
     Dosage: 900 MG EVERY 6 WEEKS
     Route: 042
     Dates: start: 20200807
  8. INFLECTRA [Suspect]
     Active Substance: INFLIXIMAB-DYYB
     Dosage: 900 MG EVERY 6 WEEKS
     Route: 042
     Dates: start: 20200915
  9. INFLECTRA [Suspect]
     Active Substance: INFLIXIMAB-DYYB
     Dosage: 900 MG EVERY 4 WEEKS
     Route: 042
     Dates: start: 20201030
  10. INFLECTRA [Suspect]
     Active Substance: INFLIXIMAB-DYYB
     Dosage: 900 MG EVERY 4 WEEKS
     Route: 042
     Dates: start: 20201030
  11. INFLECTRA [Suspect]
     Active Substance: INFLIXIMAB-DYYB
     Dosage: 900 MG EVERY 4 WEEKS
     Route: 042
     Dates: start: 20201030, end: 20211005
  12. INFLECTRA [Suspect]
     Active Substance: INFLIXIMAB-DYYB
     Dosage: 900 MG EVERY 4 WEEKS
     Route: 042
     Dates: start: 20201127
  13. INFLECTRA [Suspect]
     Active Substance: INFLIXIMAB-DYYB
     Dosage: 900 MG EVERY 4 WEEKS
     Route: 042
     Dates: start: 20210204
  14. INFLECTRA [Suspect]
     Active Substance: INFLIXIMAB-DYYB
     Dosage: 900 MG EVERY 4 WEEKS
     Route: 042
     Dates: start: 20210315
  15. INFLECTRA [Suspect]
     Active Substance: INFLIXIMAB-DYYB
     Dosage: 900 MG EVERY 4 WEEKS
     Route: 042
     Dates: start: 20210409
  16. INFLECTRA [Suspect]
     Active Substance: INFLIXIMAB-DYYB
     Dosage: 900 MG EVERY 4 WEEKS
     Route: 042
     Dates: start: 20210511
  17. INFLECTRA [Suspect]
     Active Substance: INFLIXIMAB-DYYB
     Dosage: 900 MG EVERY 4 WEEKS
     Route: 042
     Dates: start: 20210608
  18. INFLECTRA [Suspect]
     Active Substance: INFLIXIMAB-DYYB
     Dosage: 900 MG EVERY 4 WEEKS
     Route: 042
     Dates: start: 20210813
  19. INFLECTRA [Suspect]
     Active Substance: INFLIXIMAB-DYYB
     Dosage: 900 MG EVERY 4 WEEKS
     Route: 042
     Dates: start: 20210908
  20. INFLECTRA [Suspect]
     Active Substance: INFLIXIMAB-DYYB
     Dosage: 900 MG EVERY 4 WEEKS
     Route: 042
     Dates: start: 20211005
  21. INFLECTRA [Suspect]
     Active Substance: INFLIXIMAB-DYYB
     Dosage: 900 MG EVERY 4 WEEKS
     Route: 042
     Dates: start: 20211108
  22. INFLECTRA [Suspect]
     Active Substance: INFLIXIMAB-DYYB
     Dosage: 1000 MG EVERY 4 WEEKS
     Route: 042
     Dates: start: 20211108, end: 20220902
  23. INFLECTRA [Suspect]
     Active Substance: INFLIXIMAB-DYYB
     Dosage: 1000 MG EVERY 4 WEEKS
     Route: 042
     Dates: start: 2021, end: 20210902
  24. INFLECTRA [Suspect]
     Active Substance: INFLIXIMAB-DYYB
     Dosage: 900 MG EVERY 4 WEEKS
     Route: 042
     Dates: start: 20211203
  25. INFLECTRA [Suspect]
     Active Substance: INFLIXIMAB-DYYB
     Dosage: 900 MG EVERY 4 WEEKS
     Route: 042
     Dates: start: 20211229
  26. INFLECTRA [Suspect]
     Active Substance: INFLIXIMAB-DYYB
     Dosage: 900 MG EVERY 4 WEEKS
     Route: 042
     Dates: start: 20220126
  27. INFLECTRA [Suspect]
     Active Substance: INFLIXIMAB-DYYB
     Dosage: 1000 MG EVERY 4 WEEKS
     Route: 042
     Dates: start: 2021, end: 20220902
  28. INFLECTRA [Suspect]
     Active Substance: INFLIXIMAB-DYYB
     Dosage: 1000 MG EVERY 4 WEEKS
     Route: 042
     Dates: start: 20220223, end: 20220223
  29. INFLECTRA [Suspect]
     Active Substance: INFLIXIMAB-DYYB
     Dosage: 1000 MG, EVERY 4 WEEKS
     Route: 042
     Dates: start: 20220420, end: 20220420
  30. INFLECTRA [Suspect]
     Active Substance: INFLIXIMAB-DYYB
     Dosage: 1000 MG EVERY 4 WEEKS
     Route: 042
     Dates: start: 20220607
  31. INFLECTRA [Suspect]
     Active Substance: INFLIXIMAB-DYYB
     Dosage: 1000 MG EVERY 4 WEEKS
     Route: 042
     Dates: start: 20220804
  32. INFLECTRA [Suspect]
     Active Substance: INFLIXIMAB-DYYB
     Dosage: 1000 MG EVERY 4 WEEKS
     Route: 042
     Dates: start: 20220804
  33. INFLECTRA [Suspect]
     Active Substance: INFLIXIMAB-DYYB
     Dosage: 1000 MG EVERY 4 WEEKS
     Route: 042
     Dates: start: 2021, end: 20220902
  34. INFLECTRA [Suspect]
     Active Substance: INFLIXIMAB-DYYB
     Dosage: 1000 MG EVERY 4 WEEKS
     Route: 042
     Dates: start: 20220902
  35. INFLECTRA [Suspect]
     Active Substance: INFLIXIMAB-DYYB
     Dosage: UNK
     Route: 042
     Dates: start: 20221205
  36. IMURAN [Concomitant]
     Active Substance: AZATHIOPRINE
     Indication: Condition aggravated
     Dosage: 1 DF
     Route: 065
  37. PREDNISONE [Concomitant]
     Active Substance: PREDNISONE
     Dosage: UNK
  38. XELJANZ [Concomitant]
     Active Substance: TOFACITINIB CITRATE
     Indication: Colitis ulcerative
     Dosage: 10 MG, 2X/DAY
     Route: 048
     Dates: start: 20221003

REACTIONS (18)
  - Condition aggravated [Not Recovered/Not Resolved]
  - Treatment failure [Unknown]
  - Drug ineffective [Unknown]
  - Drug level above therapeutic [Unknown]
  - Drug level below therapeutic [Unknown]
  - Intentional product use issue [Unknown]
  - Off label use [Unknown]
  - Off label use [Unknown]
  - Inappropriate schedule of product administration [Unknown]
  - Paternal exposure during pregnancy [Unknown]
  - Weight increased [Unknown]
  - Heart rate decreased [Unknown]
  - Blood pressure diastolic decreased [Not Recovered/Not Resolved]
  - Blood pressure systolic increased [Unknown]
  - Condition aggravated [Recovered/Resolved]
  - Condition aggravated [Not Recovered/Not Resolved]
  - Diarrhoea [Not Recovered/Not Resolved]
  - Frequent bowel movements [Unknown]

NARRATIVE: CASE EVENT DATE: 20200210
